FAERS Safety Report 5546104-1 (Version None)
Quarter: 2007Q4

REPORT INFORMATION
  Report Type: 
  Country: None (occurrence: None)
  Receive Date: 20071211
  Receipt Date: 20071107
  Transmission Date: 20080405
  Serious: Yes (Disabling)
  Sender: FDA-Public Use
  Company Number: US-BRISTOL-MYERS SQUIBB COMPANY-13941711

PATIENT
  Sex: Female

DRUGS (2)
  1. EMSAM [Suspect]
     Indication: MAJOR DEPRESSION
     Route: 062
     Dates: start: 20070702, end: 20071009
  2. SEROQUEL [Concomitant]
     Dates: end: 20061010

REACTIONS (1)
  - HYPOTENSION [None]
